FAERS Safety Report 13122798 (Version 3)
Quarter: 2017Q1

REPORT INFORMATION
  Report Type: Spontaneous
  Country: CN (occurrence: CN)
  Receive Date: 20170117
  Receipt Date: 20170124
  Transmission Date: 20170428
  Serious: Yes (Hospitalization, Other)
  Sender: FDA-Public Use
  Company Number: CN-ABBVIE-17P-035-1841516-00

PATIENT
  Age: 28 Year
  Sex: Female

DRUGS (7)
  1. QUETIAPINE FUMARATE. [Suspect]
     Active Substance: QUETIAPINE FUMARATE
     Indication: OBSESSIVE-COMPULSIVE DISORDER
     Route: 065
  2. VALPROATE SALT NOT SPECIFIED [Suspect]
     Active Substance: VALPROATE SODIUM
     Indication: OBSESSIVE-COMPULSIVE DISORDER
     Route: 065
  3. DEPAKINE CHRONO [Suspect]
     Active Substance: VALPROATE SODIUM
     Indication: BIPOLAR DISORDER
  4. QUETIAPINE FUMARATE. [Suspect]
     Active Substance: QUETIAPINE FUMARATE
     Indication: BIPOLAR DISORDER
     Route: 065
  5. DEPAKINE CHRONO [Suspect]
     Active Substance: VALPROATE SODIUM
     Indication: OBSESSIVE-COMPULSIVE DISORDER
     Route: 065
  6. PAROXETINE. [Suspect]
     Active Substance: PAROXETINE
     Indication: OBSESSIVE-COMPULSIVE DISORDER
     Route: 065
  7. VALPROATE SALT NOT SPECIFIED [Suspect]
     Active Substance: VALPROATE SODIUM
     Indication: BIPOLAR DISORDER

REACTIONS (4)
  - Logorrhoea [Recovered/Resolved]
  - Agitation [Recovered/Resolved]
  - Therapeutic response decreased [Recovered/Resolved]
  - Mania [Recovered/Resolved]
